FAERS Safety Report 15962082 (Version 2)
Quarter: 2019Q1

REPORT INFORMATION
  Report Type: Spontaneous
  Country: ES (occurrence: ES)
  Receive Date: 20190214
  Receipt Date: 20190220
  Transmission Date: 20190417
  Serious: Yes (Hospitalization, Other)
  Sender: FDA-Public Use
  Company Number: ES-PFIZER INC-2019061814

PATIENT
  Age: 31 Year
  Sex: Female

DRUGS (8)
  1. TIZANIDINE. [Interacting]
     Active Substance: TIZANIDINE
     Dosage: 2 MG, DAILY
  2. SERTRALINE HCL [Suspect]
     Active Substance: SERTRALINE HYDROCHLORIDE
     Indication: MIXED ANXIETY AND DEPRESSIVE DISORDER
     Dosage: 100 MG, 1X/DAY, (EVERY 24 HOURS)
  3. DIAZEPAM. [Interacting]
     Active Substance: DIAZEPAM
     Indication: MIXED ANXIETY AND DEPRESSIVE DISORDER
     Dosage: 2.5 MG, 3X/DAY,EVERY 8 HOURS
  4. TIZANIDINE. [Interacting]
     Active Substance: TIZANIDINE
     Dosage: 2 MG, DAILY (EVERY 24 HOURS)
  5. TIZANIDINE. [Interacting]
     Active Substance: TIZANIDINE
     Dosage: 2 MG, EVERY 12 HOUR
  6. TIZANIDINE. [Interacting]
     Active Substance: TIZANIDINE
     Indication: MUSCLE CONTRACTURE
     Dosage: 2 MG, 3X/DAY, (EVERY 8 HOURS (6 MG DAILY) FOR A MONTH)
     Dates: start: 201605
  7. TIZANIDINE. [Interacting]
     Active Substance: TIZANIDINE
     Dosage: 2 MG, EVERY 3 HOURS
  8. TIZANIDINE. [Interacting]
     Active Substance: TIZANIDINE
     Dosage: 2 MG, EVERY 8 HOUR

REACTIONS (14)
  - Drug interaction [Recovering/Resolving]
  - Drug withdrawal syndrome [Recovering/Resolving]
  - Nausea [Recovering/Resolving]
  - Vomiting [Recovering/Resolving]
  - Tremor [Recovered/Resolved]
  - Hypertension [Recovering/Resolving]
  - Agitation [Recovered/Resolved]
  - Temperature regulation disorder [Recovering/Resolving]
  - Tachypnoea [Recovering/Resolving]
  - Intentional product misuse [Recovering/Resolving]
  - Sinus tachycardia [Recovering/Resolving]
  - Sedation [Recovering/Resolving]
  - Hyperthermia [Recovering/Resolving]
  - Heart rate increased [Recovered/Resolved]
